FAERS Safety Report 23298338 (Version 2)
Quarter: 2024Q4

REPORT INFORMATION
  Report Type: Report from Study
  Country: CA (occurrence: CA)
  Receive Date: 20231214
  Receipt Date: 20241111
  Transmission Date: 20250115
  Serious: Yes (Hospitalization, Other)
  Sender: SANDOZ
  Company Number: CA-002147023-NVSC2022CA094524

PATIENT
  Sex: Male

DRUGS (9)
  1. HYRIMOZ [Suspect]
     Active Substance: ADALIMUMAB-ADAZ
     Indication: Crohn^s disease
     Dosage: 40 MG (EVERY 10 DAYS) (FORMULATION: PRE-FILLED PEN)
     Route: 058
     Dates: start: 20220228
  2. B12 [Concomitant]
     Indication: Product used for unknown indication
     Dosage: UNK
     Route: 065
  3. METOPROLOL [Concomitant]
     Active Substance: METOPROLOL
     Indication: Product used for unknown indication
     Dosage: 12.5 MG TWICE A DAY
     Route: 065
  4. METOPROLOL [Concomitant]
     Active Substance: METOPROLOL
     Dosage: 12.5 MG TWICE A DAY
     Route: 065
  5. METOPROLOL [Concomitant]
     Active Substance: METOPROLOL
     Dosage: 25 MG
     Route: 065
  6. PERINDOPRIL [Concomitant]
     Active Substance: PERINDOPRIL
     Indication: Product used for unknown indication
     Dosage: 2 MG
     Route: 065
  7. ROSUVASTATIN [Concomitant]
     Active Substance: ROSUVASTATIN
     Indication: Product used for unknown indication
     Dosage: UNK
     Route: 065
  8. SYNTHROID [Concomitant]
     Active Substance: LEVOTHYROXINE SODIUM
     Indication: Product used for unknown indication
     Dosage: UNK
     Route: 065
  9. SYSTANE (HYPROMELLOSE 2910 (4000 MPA.S)) [Concomitant]
     Active Substance: HYPROMELLOSE 2910 (4000 MPA.S)
     Indication: Ocular hyperaemia
     Dosage: TWICE A DAY
     Route: 065

REACTIONS (20)
  - Myocardial infarction [Unknown]
  - Abdominal distension [Unknown]
  - Coordination abnormal [Unknown]
  - Gingival pain [Unknown]
  - Acne [Recovered/Resolved]
  - Foreign body sensation in eyes [Unknown]
  - Glare [Unknown]
  - Gastrointestinal inflammation [Unknown]
  - Groin pain [Unknown]
  - Haemorrhoids [Unknown]
  - Arthralgia [Unknown]
  - Back pain [Not Recovered/Not Resolved]
  - Pain in extremity [Unknown]
  - Diverticulum [Unknown]
  - Abdominal pain [Unknown]
  - Abdominal discomfort [Unknown]
  - Heart rate abnormal [Unknown]
  - Haemorrhage [Unknown]
  - Musculoskeletal chest pain [Unknown]
  - Off label use [Unknown]
